FAERS Safety Report 17086390 (Version 1)
Quarter: 2019Q4

REPORT INFORMATION
  Report Type: Spontaneous
  Country: US (occurrence: US)
  Receive Date: 20191127
  Receipt Date: 20191127
  Transmission Date: 20200122
  Serious: Yes (Other)
  Sender: FDA-Public Use
  Company Number: None

PATIENT
  Age: 81 Year
  Sex: Female

DRUGS (13)
  1. CAPECITABINE. [Suspect]
     Active Substance: CAPECITABINE
     Indication: BREAST CANCER
     Route: 048
     Dates: start: 20190408, end: 20191127
  2. GABAPENTIN. [Concomitant]
     Active Substance: GABAPENTIN
  3. LETROZOLE. [Concomitant]
     Active Substance: LETROZOLE
  4. CRESTOR [Concomitant]
     Active Substance: ROSUVASTATIN CALCIUM
  5. ONDANSETRON [Concomitant]
     Active Substance: ONDANSETRON
  6. LISINOPRIL. [Concomitant]
     Active Substance: LISINOPRIL
  7. PROCHLORPERAZINE MALEATE. [Concomitant]
     Active Substance: PROCHLORPERAZINE MALEATE
  8. XARELTO [Concomitant]
     Active Substance: RIVAROXABAN
  9. IBRANCE [Concomitant]
     Active Substance: PALBOCICLIB
  10. VITAMIN D (CHOLECALCIFEROL) [Concomitant]
     Active Substance: CHOLECALCIFEROL
  11. CALCIUM 600 [Concomitant]
     Active Substance: CALCIUM
  12. LORAZEPAM. [Concomitant]
     Active Substance: LORAZEPAM
  13. SERTRALINE HCL [Concomitant]
     Active Substance: SERTRALINE HYDROCHLORIDE

REACTIONS (1)
  - Disease progression [None]

NARRATIVE: CASE EVENT DATE: 20191127
